FAERS Safety Report 6825564-X (Version None)
Quarter: 2010Q3

REPORT INFORMATION
  Report Type: 
  Country: None (occurrence: None)
  Receive Date: 20100708
  Receipt Date: 20070821
  Transmission Date: 20110219
  Serious: No
  Sender: FDA-Public Use
  Company Number: US-PFIZER INC-2006147904

PATIENT
  Sex: Male
  Weight: 83.9 kg

DRUGS (6)
  1. CHANTIX [Suspect]
     Indication: SMOKING CESSATION THERAPY
     Route: 048
     Dates: start: 20070110, end: 20070210
  2. CELEXA [Concomitant]
  3. PROLIXIN DECANOATE [Concomitant]
  4. ACETYLSALICYLIC ACID [Concomitant]
  5. PLAVIX [Concomitant]
  6. LIPITOR [Concomitant]

REACTIONS (4)
  - DECREASED APPETITE [None]
  - DYSGEUSIA [None]
  - FEELING ABNORMAL [None]
  - NAUSEA [None]
